FAERS Safety Report 15074125 (Version 1)
Quarter: 2018Q2

REPORT INFORMATION
  Report Type: Other
  Country: FR (occurrence: FR)
  Receive Date: 20180627
  Receipt Date: 20180627
  Transmission Date: 20180711
  Serious: Yes (Hospitalization, Other)
  Sender: FDA-Public Use
  Company Number: FR-MACLEODS PHARMACEUTICALS US LTD-MAC2018014380

PATIENT

DRUGS (8)
  1. BREXIN [Concomitant]
     Indication: TOXICITY TO VARIOUS AGENTS
     Dosage: 20 MILLIGRAM
     Route: 048
     Dates: start: 20180526, end: 20180527
  2. CEFUROXIME. [Concomitant]
     Active Substance: CEFUROXIME
     Indication: TOXICITY TO VARIOUS AGENTS
     Dosage: UNK
     Route: 048
     Dates: start: 20180526, end: 20180527
  3. ATARAX [Suspect]
     Active Substance: HYDROXYZINE HYDROCHLORIDE
     Indication: TOXICITY TO VARIOUS AGENTS
     Dosage: 750 MILLIGRAM
     Route: 048
     Dates: start: 20180526, end: 20180527
  4. PARACETAMOL [Suspect]
     Active Substance: ACETAMINOPHEN
     Indication: TOXICITY TO VARIOUS AGENTS
     Dosage: 8.8 GRAM
     Route: 065
     Dates: start: 20180526, end: 20180527
  5. ESCITALOPRAM OXALATE. [Suspect]
     Active Substance: ESCITALOPRAM OXALATE
     Indication: TOXICITY TO VARIOUS AGENTS
     Dosage: 140 MILLIGRAM
     Route: 048
     Dates: start: 20180526, end: 20180527
  6. COLTRAMYL [Suspect]
     Active Substance: THIOCOLCHICOSIDE
     Indication: TOXICITY TO VARIOUS AGENTS
     Dosage: 48 MILLIGRAM
     Route: 048
     Dates: start: 20180526, end: 20180527
  7. IBUPROFEN. [Suspect]
     Active Substance: IBUPROFEN
     Indication: TOXICITY TO VARIOUS AGENTS
     Dosage: 6 GRAM
     Route: 048
     Dates: start: 20180526, end: 20180527
  8. ALPRAZOLAM. [Concomitant]
     Active Substance: ALPRAZOLAM
     Indication: TOXICITY TO VARIOUS AGENTS
     Dosage: 5 MILLIGRAM
     Route: 048
     Dates: start: 20180526, end: 20180527

REACTIONS (3)
  - Renal failure [Recovered/Resolved]
  - Pancreatitis [Recovered/Resolved]
  - Hyperleukocytosis [Recovered/Resolved]

NARRATIVE: CASE EVENT DATE: 20180528
